FAERS Safety Report 6025061-8 (Version None)
Quarter: 2008Q4

REPORT INFORMATION
  Report Type: 
  Country: None (occurrence: None)
  Receive Date: 20081230
  Receipt Date: 20081230
  Transmission Date: 20090506
  Serious: No
  Sender: FDA-Public Use
  Company Number: None

PATIENT
  Age: 34 Year
  Sex: Female
  Weight: 81.6475 kg

DRUGS (2)
  1. COLD-EEZE- CHERRY FLAVOR LOZENGE QUIGLEY [Suspect]
     Indication: NASOPHARYNGITIS
     Dosage: 1 LOZENGE 2-4 HRS PO
     Route: 048
     Dates: start: 20081213, end: 20081216
  2. COLD-EEZE- CHERRY FLAVOR LOZENGE QUIGLEY [Suspect]
     Indication: PROPHYLAXIS
     Dosage: 1 LOZENGE 2-4 HRS PO
     Route: 048
     Dates: start: 20081213, end: 20081216

REACTIONS (1)
  - DRY MOUTH [None]
